FAERS Safety Report 20225355 (Version 4)
Quarter: 2022Q1

REPORT INFORMATION
  Report Type: Spontaneous
  Country: PT (occurrence: PT)
  Receive Date: 20211224
  Receipt Date: 20220104
  Transmission Date: 20220423
  Serious: Yes (Hospitalization, Other)
  Sender: FDA-Public Use
  Company Number: PT-GT-20211099

PATIENT
  Age: 72 Year
  Sex: Female

DRUGS (2)
  1. HALOPERIDOL [Suspect]
     Active Substance: HALOPERIDOL
     Indication: Psychomotor hyperactivity
     Dosage: UNK
     Route: 065
  2. QUETIAPINE [Suspect]
     Active Substance: QUETIAPINE
     Indication: Psychomotor hyperactivity
     Dosage: UNK
     Route: 065

REACTIONS (3)
  - Neuroleptic malignant syndrome [Recovered/Resolved]
  - Depressed level of consciousness [Recovered/Resolved]
  - Pyrexia [Recovered/Resolved]
